FAERS Safety Report 6782871-7 (Version None)
Quarter: 2010Q2

REPORT INFORMATION
  Report Type: 
  Country: None (occurrence: None)
  Receive Date: 20100617
  Receipt Date: 20100602
  Transmission Date: 20101027
  Serious: Yes (Other)
  Sender: FDA-Public Use
  Company Number: CIP10001345

PATIENT
  Age: 56 Year

DRUGS (1)
  1. ACTONEL [Suspect]
     Dosage: ORAL

REACTIONS (2)
  - ENDODONTIC PROCEDURE [None]
  - IMPAIRED HEALING [None]
